FAERS Safety Report 5060131-2 (Version None)
Quarter: 2006Q3

REPORT INFORMATION
  Report Type: 
  Country: None (occurrence: None)
  Receive Date: 20060719
  Receipt Date: 20060707
  Transmission Date: 20061208
  Serious: Yes (Hospitalization, Other)
  Sender: FDA-Public Use
  Company Number: HQWYE722710JUL06

PATIENT
  Age: 36 Year
  Sex: Male

DRUGS (3)
  1. RAPAMUNE [Suspect]
     Indication: PROPHYLAXIS AGAINST TRANSPLANT REJECTION
     Dosage: 4 MG 1X PER 1 DAY ORAL; 3 MG 1X PER 1 DAY ORAL
     Route: 048
     Dates: start: 20060314, end: 20060703
  2. RAPAMUNE [Suspect]
     Indication: PROPHYLAXIS AGAINST TRANSPLANT REJECTION
     Dosage: 4 MG 1X PER 1 DAY ORAL; 3 MG 1X PER 1 DAY ORAL
     Route: 048
     Dates: start: 20060704, end: 20060711
  3. MYCOPHENOLATE MOFETIL [Concomitant]

REACTIONS (1)
  - KIDNEY TRANSPLANT REJECTION [None]
